FAERS Safety Report 17016741 (Version 2)
Quarter: 2019Q4

REPORT INFORMATION
  Report Type: Spontaneous
  Country: US (occurrence: US)
  Receive Date: 20191111
  Receipt Date: 20191230
  Transmission Date: 20200122
  Serious: No
  Sender: FDA-Public Use
  Company Number: US-MYLANLABS-2019M1102621

PATIENT
  Age: 63 Year
  Sex: Female

DRUGS (2)
  1. DENAVIR [Suspect]
     Active Substance: PENCICLOVIR
     Indication: ORAL HERPES
     Dosage: UNK, STARTED COUPLE OF YEARS AGO
     Route: 061
  2. DENAVIR [Suspect]
     Active Substance: PENCICLOVIR
     Dosage: UNK
     Route: 061
     Dates: start: 20190605

REACTIONS (2)
  - Drug ineffective [Recovered/Resolved]
  - Expired product administered [Not Recovered/Not Resolved]

NARRATIVE: CASE EVENT DATE: 20190605
